FAERS Safety Report 20607033 (Version 2)
Quarter: 2022Q1

REPORT INFORMATION
  Report Type: Spontaneous
  Country: US (occurrence: US)
  Receive Date: 20220317
  Receipt Date: 20220329
  Transmission Date: 20220424
  Serious: Yes (Other)
  Sender: FDA-Public Use
  Company Number: US-MLMSERVICE-20220301-3403337-1

PATIENT
  Age: 26 Year
  Sex: Male
  Weight: 36.3 kg

DRUGS (3)
  1. CARBOPLATIN [Suspect]
     Active Substance: CARBOPLATIN
     Indication: Oesophageal squamous cell carcinoma
     Dosage: AREA UNDER THE CURVE(AUC 1) (3 CYCLES)
  2. PACLITAXEL [Suspect]
     Active Substance: PACLITAXEL
     Indication: Oesophageal squamous cell carcinoma
     Dosage: 50 MG/M2, CYCLIC(2 CYCLES)
  3. PACLITAXEL [Suspect]
     Active Substance: PACLITAXEL
     Dosage: 25 MG/M2, CYCLIC(1 CYCLE)

REACTIONS (5)
  - Stomatitis [Recovering/Resolving]
  - Myalgia [Recovering/Resolving]
  - Vomiting [Recovering/Resolving]
  - Nausea [Recovering/Resolving]
  - Infusion related reaction [Recovering/Resolving]
